FAERS Safety Report 4559845-X (Version None)
Quarter: 2005Q1

REPORT INFORMATION
  Report Type: 
  Country: None (occurrence: None)
  Receive Date: 20050124
  Receipt Date: 20050114
  Transmission Date: 20050727
  Serious: Yes (Death)
  Sender: FDA-Public Use
  Company Number: US-MERCK-0501USA02035

PATIENT
  Age: 78 Year
  Sex: Male

DRUGS (4)
  1. VIOXX [Suspect]
     Indication: PAIN
     Route: 048
     Dates: end: 20040921
  2. LIPITOR [Concomitant]
     Route: 065
  3. [THERAPY UNSPECIFIED] [Concomitant]
     Route: 065
  4. COUMADIN [Concomitant]
     Route: 065

REACTIONS (1)
  - ARRHYTHMIA [None]
